FAERS Safety Report 9107892 (Version 1)
Quarter: 2013Q1

REPORT INFORMATION
  Report Type: Spontaneous
  Country: US (occurrence: US)
  Receive Date: 20130221
  Receipt Date: 20130221
  Transmission Date: 20140127
  Serious: No
  Sender: FDA-Public Use
  Company Number: US-PFIZER INC-2013063796

PATIENT
  Age: 85 Year
  Sex: Male
  Weight: 58.05 kg

DRUGS (3)
  1. VIAGRA [Suspect]
     Indication: ERECTILE DYSFUNCTION
     Dosage: 20 MG, EVERY 2-3 TIMES A WEEK
     Route: 048
     Dates: start: 2003, end: 2010
  2. VIAGRA [Suspect]
     Dosage: 50 MG, SINGLE
     Route: 048
     Dates: start: 20130215
  3. SU-PHEDRINE [Concomitant]
     Indication: NASOPHARYNGITIS
     Dosage: 10 MG, 1X/DAY
     Route: 048

REACTIONS (1)
  - Drug ineffective [Unknown]
